FAERS Safety Report 7392560-6 (Version None)
Quarter: 2011Q2

REPORT INFORMATION
  Report Type: 
  Country: None (occurrence: None)
  Receive Date: 20110404
  Receipt Date: 20110331
  Transmission Date: 20111010
  Serious: Yes (Hospitalization)
  Sender: FDA-Public Use
  Company Number: JP-ABBOTT-10P-087-0693185-00

PATIENT
  Sex: Female

DRUGS (13)
  1. CELECOXIB [Concomitant]
     Indication: RHEUMATOID ARTHRITIS
     Dosage: DAILY
     Route: 048
  2. ISONIAZID [Concomitant]
     Indication: ANTIBIOTIC PROPHYLAXIS
  3. PYRIDOXAL PHOSPHATE [Concomitant]
     Indication: PROPHYLAXIS
  4. OMEPRAZOLE [Concomitant]
     Indication: ADVERSE DRUG REACTION
  5. METHOTREXATE [Concomitant]
     Indication: PRODUCT USED FOR UNKNOWN INDICATION
     Dates: start: 20090401, end: 20090925
  6. TELMISARTAN [Concomitant]
     Indication: PRODUCT USED FOR UNKNOWN INDICATION
     Route: 048
  7. MAGNESIUM OXIDE [Concomitant]
     Indication: PRODUCT USED FOR UNKNOWN INDICATION
     Route: 048
  8. PYRIDOXAL PHOSPHATE [Concomitant]
     Indication: ADVERSE DRUG REACTION
  9. AMLODIPINE BESILATE [Concomitant]
     Indication: HYPERTENSION
     Dosage: DAILY
     Route: 048
  10. ALFACALCIDOL [Concomitant]
     Indication: OSTEOPOROSIS PROPHYLAXIS
     Dosage: DAILY
  11. OMEPRAZOLE [Concomitant]
     Indication: PROPHYLAXIS
     Route: 048
  12. FERROUS CITRATE [Concomitant]
     Indication: PRODUCT USED FOR UNKNOWN INDICATION
     Dosage: DAILY
  13. HUMIRA [Suspect]
     Indication: RHEUMATOID ARTHRITIS
     Route: 058
     Dates: start: 20090511, end: 20101129

REACTIONS (4)
  - INFECTION [None]
  - PYREXIA [None]
  - PHARYNGITIS [None]
  - ASTHENIA [None]
